FAERS Safety Report 5098355-0 (Version None)
Quarter: 2006Q3

REPORT INFORMATION
  Report Type: 
  Country: None (occurrence: None)
  Receive Date: 20060906
  Receipt Date: 20060828
  Transmission Date: 20061208
  Serious: Yes (Other)
  Sender: FDA-Public Use
  Company Number: US-JNJFOC-20060806197

PATIENT
  Sex: Female
  Weight: 112.49 kg

DRUGS (3)
  1. IMODIUM [Suspect]
     Indication: DIARRHOEA
  2. BYETTA [Suspect]
     Dosage: SC
     Route: 058
  3. BYETTA [Suspect]
     Indication: DIABETES MELLITUS NON-INSULIN-DEPENDENT
     Dosage: SC
     Route: 058

REACTIONS (5)
  - ABDOMINAL DISTENSION [None]
  - CONSTIPATION [None]
  - DIARRHOEA [None]
  - FLATULENCE [None]
  - WEIGHT DECREASED [None]
